FAERS Safety Report 4721071-9 (Version None)
Quarter: 2005Q3

REPORT INFORMATION
  Report Type: 
  Country: None (occurrence: None)
  Receive Date: 20050719
  Receipt Date: 20041029
  Transmission Date: 20060218
  Serious: Yes (Hospitalization)
  Sender: FDA-Public Use
  Company Number: 2004243621US

PATIENT
  Age: 77 Year
  Sex: Female

DRUGS (9)
  1. CELEBREX [Suspect]
     Dosage: ORAL
     Route: 048
  2. OSCAL (CALCIUM CARBONATE) [Suspect]
     Indication: BLOOD CALCIUM ABNORMAL
     Dosage: ORAL
     Route: 048
     Dates: start: 20010101
  3. MIRTAZAPINE [Concomitant]
  4. CHLORDIAZEPOXIDE [Concomitant]
  5. CLONIDINE [Concomitant]
  6. DONEPEZIL HCL [Concomitant]
  7. FOLIC ACID [Concomitant]
  8. THIAMINE HCL [Concomitant]
  9. ESTRADIOL [Concomitant]

REACTIONS (3)
  - ANOREXIA [None]
  - GASTROINTESTINAL DISORDER [None]
  - VOMITING [None]
